FAERS Safety Report 6191137-8 (Version None)
Quarter: 2009Q2

REPORT INFORMATION
  Report Type: 
  Country: None (occurrence: None)
  Receive Date: 20090515
  Receipt Date: 20090508
  Transmission Date: 20091009
  Serious: No
  Sender: FDA-Public Use
  Company Number: JP-JNJFOC-20090501886

PATIENT

DRUGS (4)
  1. DUROTEP MT [Suspect]
     Route: 062
  2. DUROTEP MT [Suspect]
     Route: 062
  3. DUROTEP MT [Suspect]
     Indication: DRUG USE FOR UNKNOWN INDICATION
     Dosage: IN 2 DAY CYCLES
     Route: 062
  4. GABAPENTIN [Interacting]
     Indication: DRUG USE FOR UNKNOWN INDICATION
     Route: 048

REACTIONS (6)
  - CONSTIPATION [None]
  - DRUG INTERACTION [None]
  - INADEQUATE ANALGESIA [None]
  - INAPPROPRIATE SCHEDULE OF DRUG ADMINISTRATION [None]
  - SOMNOLENCE [None]
  - WRONG TECHNIQUE IN DRUG USAGE PROCESS [None]
